FAERS Safety Report 6809940-7 (Version None)
Quarter: 2010Q2

REPORT INFORMATION
  Report Type: 
  Country: None (occurrence: None)
  Receive Date: 20100630
  Receipt Date: 20100618
  Transmission Date: 20101027
  Serious: Yes (Hospitalization)
  Sender: FDA-Public Use
  Company Number: A0863934A

PATIENT
  Age: 52 Year
  Sex: Female

DRUGS (1)
  1. AVANDIA [Suspect]
     Route: 048
     Dates: start: 20000419, end: 20000715

REACTIONS (8)
  - ANXIETY [None]
  - BRADYCARDIA [None]
  - CARDIAC ENZYMES INCREASED [None]
  - CEREBROVASCULAR ACCIDENT [None]
  - HEMIPARESIS [None]
  - HYPOTENSION [None]
  - SILENT MYOCARDIAL INFARCTION [None]
  - STRESS [None]
